FAERS Safety Report 10104976 (Version 2)
Quarter: 2014Q4

REPORT INFORMATION
  Report Type: Other
  Country: US (occurrence: US)
  Receive Date: 20140424
  Receipt Date: 20141023
  Transmission Date: 20150528
  Serious: Yes (Hospitalization, Other)
  Sender: FDA-Public Use
  Company Number: US-GSKPPD-2014GSK001246

PATIENT
  Age: 67 Year
  Sex: Male

DRUGS (9)
  1. PROCARDIA [Concomitant]
     Active Substance: NIFEDIPINE
  2. TRICOR [Concomitant]
     Active Substance: FENOFIBRATE
  3. ASPIRIN. [Concomitant]
     Active Substance: ASPIRIN
  4. PLETAL [Concomitant]
     Active Substance: CILOSTAZOL
  5. COREG [Concomitant]
     Active Substance: CARVEDILOL
  6. ZETIA [Concomitant]
     Active Substance: EZETIMIBE
  7. NIASPAN [Concomitant]
     Active Substance: NIACIN
  8. MICARDIS/HYDROCHLOROTHIAZIDE [Concomitant]
     Dosage: 80/12.5 MG
  9. AVANDIA [Suspect]
     Active Substance: ROSIGLITAZONE MALEATE
     Indication: DIABETES MELLITUS
     Dosage: AVANDIA WAS NOT LISTED AMONG THE PATIENT^S ADMISSION/DISCHARGE RECORDS
     Route: 048

REACTIONS (1)
  - Myocardial infarction [Recovered/Resolved]

NARRATIVE: CASE EVENT DATE: 20070127
